FAERS Safety Report 21180316 (Version 1)
Quarter: 2022Q3

REPORT INFORMATION
  Report Type: Spontaneous
  Country: US (occurrence: US)
  Receive Date: 20220806
  Receipt Date: 20220806
  Transmission Date: 20221027
  Serious: No
  Sender: FDA-Public Use
  Company Number: US-BRISTOL-MYERS SQUIBB COMPANY-2022-086143

PATIENT
  Age: 79 Year
  Sex: Male

DRUGS (1)
  1. REVLIMID [Suspect]
     Active Substance: LENALIDOMIDE
     Indication: Mantle cell lymphoma
     Dosage: FREQ: TAKE 1 CAPSULE BY MOUTH WHOLE WITH WATER W/ OR W/O FOOD AT THE SAME TIME DAILY FOR 21 DAYS THE
     Route: 048
     Dates: start: 20220304

REACTIONS (1)
  - Diarrhoea [Not Recovered/Not Resolved]
